FAERS Safety Report 19152411 (Version 1)
Quarter: 2021Q2

REPORT INFORMATION
  Report Type: Spontaneous
  Country: US (occurrence: US)
  Receive Date: 20210419
  Receipt Date: 20210419
  Transmission Date: 20210717
  Serious: No
  Sender: FDA-Public Use
  Company Number: US-BAUSCH-BL-2021-009694

PATIENT
  Age: 47 Year
  Sex: Female

DRUGS (2)
  1. RETIN?A MICRO [Suspect]
     Active Substance: TRETINOIN
     Route: 061
     Dates: start: 20210311, end: 20210312
  2. RETIN?A MICRO [Suspect]
     Active Substance: TRETINOIN
     Indication: SWEAT GLAND TUMOUR
     Dosage: 1 APPLICATION EVERY OTHER DAILY.
     Route: 061
     Dates: start: 2020, end: 2020

REACTIONS (4)
  - Application site irritation [Recovered/Resolved]
  - Application site swelling [Recovered/Resolved]
  - Application site pain [Unknown]
  - Application site erythema [Recovered/Resolved]

NARRATIVE: CASE EVENT DATE: 202103
